FAERS Safety Report 26191823 (Version 1)
Quarter: 2025Q4

REPORT INFORMATION
  Report Type: Spontaneous
  Country: US (occurrence: US)
  Receive Date: 20251223
  Receipt Date: 20251223
  Transmission Date: 20260117
  Serious: Yes (Other)
  Sender: BLUEPRINT MEDICINES
  Company Number: US-Blueprint Medicines Corporation-2025-AER-02759

PATIENT
  Age: 66 Year
  Sex: Male

DRUGS (2)
  1. AYVAKIT [Suspect]
     Active Substance: AVAPRITINIB
     Indication: Malignant mast cell neoplasm
     Route: 065
     Dates: start: 20230617
  2. CLINDAMYCIN [Suspect]
     Active Substance: CLINDAMYCIN
     Indication: Salivary duct obstruction
     Route: 065

REACTIONS (7)
  - Anaphylactic reaction [Recovering/Resolving]
  - Cough [Recovering/Resolving]
  - Swelling face [Recovering/Resolving]
  - Gastrooesophageal reflux disease [Recovering/Resolving]
  - Salivary duct obstruction [Recovering/Resolving]
  - Oesophageal pain [Recovering/Resolving]
  - Salivary gland pain [Recovering/Resolving]

NARRATIVE: CASE EVENT DATE: 20251218
